FAERS Safety Report 14134853 (Version 1)
Quarter: 2017Q4

REPORT INFORMATION
  Report Type: Report from Study
  Country: CN (occurrence: CN)
  Receive Date: 20171027
  Receipt Date: 20171027
  Transmission Date: 20180321
  Serious: Yes (Other)
  Sender: FDA-Public Use
  Company Number: CN-BAYER-2017-180222

PATIENT
  Sex: Male
  Weight: 78 kg

DRUGS (1)
  1. STIVARGA [Suspect]
     Active Substance: REGORAFENIB
     Indication: COLORECTAL CANCER
     Dosage: 160 MG, UNK
     Route: 048
     Dates: start: 20170908

REACTIONS (9)
  - Neoplasm progression [Unknown]
  - Abdominal pain upper [Recovered/Resolved]
  - Hepatic function abnormal [Unknown]
  - Jaundice cholestatic [Unknown]
  - Colorectal cancer [Unknown]
  - Hiccups [Unknown]
  - Somnolence [None]
  - Fatigue [Unknown]
  - Weight decreased [Unknown]

NARRATIVE: CASE EVENT DATE: 201709
